FAERS Safety Report 4284887-1 (Version None)
Quarter: 2004Q1

REPORT INFORMATION
  Report Type: 
  Country: None (occurrence: None)
  Receive Date: 20040202
  Receipt Date: 20030516
  Transmission Date: 20041129
  Serious: No
  Sender: FDA-Public Use
  Company Number: DSA_70104_2003

PATIENT
  Age: 20 Year
  Sex: Female

DRUGS (2)
  1. TERBUTALINE SUBCUTANEOUS [Suspect]
     Indication: TOCOLYSIS
     Dosage: 0.25 MG INFUSION SC
     Route: 058
     Dates: start: 20030101, end: 20030101
  2. TERBUTALINE ORAL [Suspect]
     Indication: TOCOLYSIS
     Dosage: 5 MG Q4HR PO
     Route: 048
     Dates: start: 20030101, end: 20030101

REACTIONS (2)
  - ATRIAL FIBRILLATION [None]
  - COMPLICATIONS OF MATERNAL EXPOSURE TO THERAPEUTIC DRUGS [None]
